FAERS Safety Report 4332727-4 (Version None)
Quarter: 2004Q1

REPORT INFORMATION
  Report Type: 
  Country: None (occurrence: None)
  Receive Date: 20040330
  Receipt Date: 20040318
  Transmission Date: 20041129
  Serious: Yes (Hospitalization, Other)
  Sender: FDA-Public Use
  Company Number: HQWYE986218MAR04

PATIENT
  Age: 82 Year
  Sex: Male

DRUGS (2)
  1. CORDARONE [Suspect]
     Indication: ATRIAL FIBRILLATION
     Dosage: 1000 MG CONTINUOUS DRIP INTRAVENOUS
     Route: 042
     Dates: start: 20040223, end: 20040224
  2. LASIX [Concomitant]

REACTIONS (1)
  - HEPATITIS TOXIC [None]
